FAERS Safety Report 14928170 (Version 2)
Quarter: 2018Q3

REPORT INFORMATION
  Report Type: Report from Study
  Country: ES (occurrence: ES)
  Receive Date: 20180523
  Receipt Date: 20180702
  Transmission Date: 20181010
  Serious: Yes (Hospitalization)
  Sender: FDA-Public Use
  Company Number: ES-PFIZER INC-2018205968

PATIENT
  Age: 9 Month
  Sex: Female
  Weight: 6.7 kg

DRUGS (6)
  1. COLECALCIFEROL [Concomitant]
     Active Substance: CHOLECALCIFEROL
     Indication: PROPHYLAXIS
     Dosage: 396 IU, 1X/DAY
     Route: 048
     Dates: start: 20170606
  2. ZOVIRAX [Concomitant]
     Active Substance: ACYCLOVIR
     Indication: PROPHYLAXIS
     Dosage: 64 MG, 3X/DAY (EVERY 8 HOURS)
     Route: 048
     Dates: start: 20170606
  3. CYTARABINE. [Suspect]
     Active Substance: CYTARABINE
     Indication: ACUTE LYMPHOCYTIC LEUKAEMIA
     Dosage: 19.7 MG, 1X/DAY
     Route: 042
     Dates: start: 20180104, end: 20180106
  4. DEXAMETHASON /00016001/ [Suspect]
     Active Substance: DEXAMETHASONE
     Indication: ACUTE LYMPHOCYTIC LEUKAEMIA
     Dosage: 1 MG, 2X/DAY (EVERY 12 HOURS)
     Route: 048
     Dates: start: 20171221, end: 20180111
  5. SEPTRIN PAEDIATRIC [Concomitant]
     Active Substance: SULFAMETHOXAZOLE\TRIMETHOPRIM
     Indication: PROPHYLAXIS
     Dosage: 1.5 ML, 2X/DAY (EVERY 12 HOURS)
     Route: 048
     Dates: start: 20170606
  6. TIOGUANINA ASPEN [Suspect]
     Active Substance: THIOGUANINE ANHYDROUS
     Indication: ACUTE LYMPHOCYTIC LEUKAEMIA
     Dosage: 16 MG, 1X/DAY
     Route: 048
     Dates: start: 20180104, end: 20180106

REACTIONS (3)
  - Otitis media [Recovered/Resolved]
  - Influenza [Recovered/Resolved]
  - Agranulocytosis [Recovered/Resolved]

NARRATIVE: CASE EVENT DATE: 20180106
